FAERS Safety Report 11327957 (Version 1)
Quarter: 2015Q3

REPORT INFORMATION
  Report Type: Spontaneous
  Country: DE (occurrence: DE)
  Receive Date: 20150731
  Receipt Date: 20150731
  Transmission Date: 20151125
  Serious: Yes (Other)
  Sender: FDA-Public Use
  Company Number: DE-TEVA-582640GER

PATIENT
  Age: 93 Year
  Sex: Female

DRUGS (2)
  1. FENTANYL PATCHES [Concomitant]
     Active Substance: FENTANYL
     Indication: DECUBITUS ULCER
     Dates: start: 2015
  2. TIZANIDIN TEVA 2 MG [Suspect]
     Active Substance: TIZANIDINE
     Indication: MUSCLE SPASTICITY
     Dosage: THREE DOSES IN TOTAL
     Dates: start: 201507, end: 20150723

REACTIONS (3)
  - Diarrhoea [Recovering/Resolving]
  - Blood pressure decreased [Recovering/Resolving]
  - Unresponsive to stimuli [Recovering/Resolving]

NARRATIVE: CASE EVENT DATE: 201507
